FAERS Safety Report 4284685-9 (Version None)
Quarter: 2004Q1

REPORT INFORMATION
  Report Type: 
  Country: None (occurrence: None)
  Receive Date: 20040130
  Receipt Date: 20040122
  Transmission Date: 20041129
  Serious: Yes (Death)
  Sender: FDA-Public Use
  Company Number: BE-JNJFOC-20040101691

PATIENT
  Age: 29 Year
  Sex: Female

DRUGS (11)
  1. PROPULSID [Suspect]
     Indication: IMPAIRED GASTRIC EMPTYING
     Dosage: 20 MG, 4 IN 1 DAY,
     Dates: start: 20030514, end: 20031205
  2. PROGRAF [Concomitant]
  3. IMURAN [Concomitant]
  4. MEDROL [Concomitant]
  5. ACCUPRIL [Concomitant]
  6. SELOZOK (METOPROLOL SUCCINATE) [Concomitant]
  7. PARIET (RABEPRAZOLE SODIUM) [Concomitant]
  8. CALCIUM CARBONATE (CALCIUM CARBONTE) [Concomitant]
  9. ALVITYL (ALVITYL) [Concomitant]
  10. EPHYNAL [Concomitant]
  11. VFEND (IBUPROFEN) [Concomitant]

REACTIONS (1)
  - ACUTE RESPIRATORY FAILURE [None]
